FAERS Safety Report 17240951 (Version 1)
Quarter: 2019Q4

REPORT INFORMATION
  Report Type: Spontaneous
  Country: US (occurrence: US)
  Receive Date: 20191211
  Receipt Date: 20191211
  Transmission Date: 20200122
  Serious: No
  Sender: FDA-Public Use
  Company Number: None

PATIENT

DRUGS (2)
  1. ANTITHROMBIN III [Suspect]
     Active Substance: ANTITHROMBIN III HUMAN
  2. GIAPREZA [Suspect]
     Active Substance: ANGIOTENSIN II

REACTIONS (1)
  - Product name confusion [None]
